FAERS Safety Report 10869947 (Version 2)
Quarter: 2018Q2

REPORT INFORMATION
  Report Type: Spontaneous
  Country: US (occurrence: US)
  Receive Date: 20150226
  Receipt Date: 20180608
  Transmission Date: 20180711
  Serious: No
  Sender: FDA-Public Use
  Company Number: US-PFIZER INC-2015066647

PATIENT
  Age: 45 Year
  Sex: Female
  Weight: 104.3 kg

DRUGS (3)
  1. LYRICA [Suspect]
     Active Substance: PREGABALIN
     Indication: NEURALGIA
  2. LYRICA [Suspect]
     Active Substance: PREGABALIN
     Indication: SCIATICA
  3. LYRICA [Suspect]
     Active Substance: PREGABALIN
     Indication: SCIATIC NERVE INJURY
     Dosage: 150 MG, 3X/DAY
     Route: 048
     Dates: start: 2007

REACTIONS (3)
  - Therapeutic response unexpected [Unknown]
  - Body height decreased [Unknown]
  - Pre-existing condition improved [Unknown]
